FAERS Safety Report 5873908-8 (Version None)
Quarter: 2008Q3

REPORT INFORMATION
  Report Type: 
  Country: None (occurrence: None)
  Receive Date: 20080905
  Receipt Date: 20080905
  Transmission Date: 20090109
  Serious: Yes (Hospitalization)
  Sender: FDA-Public Use
  Company Number: None

PATIENT
  Age: 14 Year
  Sex: Female
  Weight: 55 kg

DRUGS (2)
  1. METHIMAZOLE [Suspect]
     Indication: BASEDOW'S DISEASE
     Dosage: 20 MG DAILY PO
     Route: 048
     Dates: start: 20080201, end: 20080310
  2. ATENOLOL [Concomitant]

REACTIONS (1)
  - STEVENS-JOHNSON SYNDROME [None]
